FAERS Safety Report 4878865-9 (Version None)
Quarter: 2005Q4

REPORT INFORMATION
  Report Type: 
  Country: None (occurrence: None)
  Receive Date: 20051209
  Receipt Date: 20050525
  Transmission Date: 20060501
  Serious: Yes (Other)
  Sender: FDA-Public Use
  Company Number: USA-2005-0020404

PATIENT
  Age: 81 Year
  Sex: Female

DRUGS (5)
  1. OXYCONTIN [Suspect]
     Indication: PAIN
     Dosage: 10 MG, NOCTE, ORAL
     Route: 048
  2. INDERAL [Concomitant]
  3. VASOTEC [Concomitant]
  4. COUMADIN [Concomitant]
  5. VALIUM [Concomitant]

REACTIONS (10)
  - ABDOMINAL PAIN UPPER [None]
  - ASTHENIA [None]
  - DIZZINESS [None]
  - DYSPEPSIA [None]
  - DYSPNOEA [None]
  - DYSURIA [None]
  - MOUTH HAEMORRHAGE [None]
  - NAUSEA [None]
  - SOMNOLENCE [None]
  - VISION BLURRED [None]
